FAERS Safety Report 5239683-5 (Version None)
Quarter: 2007Q1

REPORT INFORMATION
  Report Type: 
  Country: None (occurrence: None)
  Receive Date: 20070216
  Receipt Date: 20070206
  Transmission Date: 20070707
  Serious: Yes (Other)
  Sender: FDA-Public Use
  Company Number: US-ROCHE-473101

PATIENT
  Age: 57 Year
  Sex: Female
  Weight: 65.3 kg

DRUGS (1)
  1. BONIVA [Suspect]
     Indication: OSTEOPOROSIS
     Dosage: THE PATIENT RECEIVED HER SECOND DOSE ON 15 NOVEMBER 2006.
     Route: 048
     Dates: start: 20061015, end: 20061122

REACTIONS (9)
  - DIARRHOEA [None]
  - DRY THROAT [None]
  - EAR DISORDER [None]
  - FATIGUE [None]
  - HEADACHE [None]
  - MUSCULOSKELETAL DISCOMFORT [None]
  - PAIN IN JAW [None]
  - RESPIRATORY DISORDER [None]
  - RHINITIS ALLERGIC [None]
